FAERS Safety Report 15600953 (Version 2)
Quarter: 2018Q4

REPORT INFORMATION
  Report Type: Report from Study
  Country: CO (occurrence: CO)
  Receive Date: 20181109
  Receipt Date: 20181121
  Transmission Date: 20190205
  Serious: Yes (Hospitalization)
  Sender: FDA-Public Use
  Company Number: CO-TAKEDA-2018TUS024778

PATIENT
  Age: 32 Year
  Sex: Female
  Weight: 48 kg

DRUGS (5)
  1. SULBACTAM [Concomitant]
     Active Substance: SULBACTAM
     Dosage: UNK
  2. AMPICILIN KRYST. [Concomitant]
     Dosage: UNK
  3. VEDOLIZUMAB [Suspect]
     Active Substance: VEDOLIZUMAB
     Indication: CROHN^S DISEASE
     Dosage: 300 MG, UNK
     Route: 042
     Dates: start: 20170525
  4. HYDROCORTISONE. [Suspect]
     Active Substance: HYDROCORTISONE
     Indication: PRODUCT USED FOR UNKNOWN INDICATION
     Dosage: UNK
     Route: 065
  5. CLARITROMICINA [Concomitant]
     Active Substance: CLARITHROMYCIN
     Dosage: UNK

REACTIONS (8)
  - Pneumonia [Unknown]
  - Abdominal pain [Unknown]
  - Vomiting [Unknown]
  - Bronchitis [Unknown]
  - Ocular icterus [Unknown]
  - Headache [Unknown]
  - Oedema [Recovered/Resolved]
  - Tonsillitis [Unknown]

NARRATIVE: CASE EVENT DATE: 20181015
